FAERS Safety Report 8025848 (Version 2)
Quarter: 2013Q1

REPORT INFORMATION
  Report Type: Spontaneous
  Country: US (occurrence: US)
  Receive Date: 20110708
  Receipt Date: 20130311
  Transmission Date: 20140127
  Serious: Yes (Hospitalization, Other)
  Sender: FDA-Public Use
  Company Number: US-JNJFOC-20110304835

PATIENT
  Sex: Male

DRUGS (4)
  1. LEVAQUIN [Suspect]
     Indication: APPENDICITIS
     Route: 048
  2. LEVAQUIN [Suspect]
     Indication: APPENDICITIS
     Route: 048
     Dates: start: 20090101, end: 20090108
  3. LEVAQUIN [Suspect]
     Indication: INFECTION
     Route: 042
  4. LEVAQUIN [Suspect]
     Indication: INFECTION
     Route: 048

REACTIONS (5)
  - Rotator cuff syndrome [Recovering/Resolving]
  - Tendonitis [Unknown]
  - Rotator cuff syndrome [Unknown]
  - Rotator cuff syndrome [Unknown]
  - Rotator cuff syndrome [Unknown]
